FAERS Safety Report 18789030 (Version 1)
Quarter: 2021Q1

REPORT INFORMATION
  Report Type: Spontaneous
  Country: GB (occurrence: GB)
  Receive Date: 20210126
  Receipt Date: 20210126
  Transmission Date: 20210419
  Serious: Yes (Other)
  Sender: FDA-Public Use
  Company Number: GB-MYLANLABS-2021M1003955

PATIENT
  Age: 69 Year
  Sex: Female
  Weight: 73 kg

DRUGS (12)
  1. GANFORT [Concomitant]
     Active Substance: BIMATOPROST\TIMOLOL
     Dosage: 2 GTT DROPS, QD, ONE INTO EACH EYE.
     Dates: start: 20200627
  2. ESTRADIOL. [Concomitant]
     Active Substance: ESTRADIOL
     Dosage: INSERT TWICE A WEEK, OR AS DIRECTED
     Dates: start: 20200627
  3. MOMETASONE [Concomitant]
     Active Substance: MOMETASONE
     Dosage: 1 DOSAGE FORM, QD, APPLY.
     Dates: start: 20190718
  4. PREGABALIN. [Concomitant]
     Active Substance: PREGABALIN
     Dosage: TAKE ONE TWICE OR THREE TIMES DAILY.
     Dates: start: 20200627
  5. HYLO TEAR [Concomitant]
     Indication: DRY EYE
     Dosage: 1 GTT DROPS, PRN
     Dates: start: 20190718
  6. CARBOMER [Concomitant]
     Active Substance: CARBOMER
     Dosage: 2 GTT DROPS, TID, BOTH EYES
     Dates: start: 20190926
  7. CLOPIDOGREL [Concomitant]
     Active Substance: CLOPIDOGREL BISULFATE
     Dosage: 1 DOSAGE FORM, QD, IN MORNING
     Dates: start: 20200627
  8. LOSARTAN. [Concomitant]
     Active Substance: LOSARTAN
     Dosage: 1 DOSAGE FORM, QD
     Dates: start: 20200627
  9. SOLIFENACIN [Concomitant]
     Active Substance: SOLIFENACIN
     Dosage: 1 DOSAGE FORM, QD
     Dates: start: 20200924
  10. CIPROFLOXACIN. [Suspect]
     Active Substance: CIPROFLOXACIN
     Indication: PRODUCT USED FOR UNKNOWN INDICATION
     Dosage: 250 MILLIGRAM
     Dates: start: 20200714
  11. AMITRIPTYLINE HYDROCHLORIDE. [Concomitant]
     Active Substance: AMITRIPTYLINE HYDROCHLORIDE
     Dosage: 2 DOSAGE FORM, AT NIGHT
     Dates: start: 20200627
  12. BISOPROLOL [Concomitant]
     Active Substance: BISOPROLOL
     Dosage: 1 DOSAGE FORM, QD
     Dates: start: 20200518

REACTIONS (2)
  - Palpitations [Recovered/Resolved]
  - Nausea [Recovered/Resolved]

NARRATIVE: CASE EVENT DATE: 20210112
